FAERS Safety Report 20548425 (Version 1)
Quarter: 2022Q1

REPORT INFORMATION
  Report Type: Spontaneous
  Country: US (occurrence: US)
  Receive Date: 20220303
  Receipt Date: 20220303
  Transmission Date: 20220423
  Serious: No
  Sender: FDA-Public Use
  Company Number: US-ALLERGAN-2108579US

PATIENT
  Age: 76 Year
  Sex: Female

DRUGS (4)
  1. RESTASIS [Suspect]
     Active Substance: CYCLOSPORINE
     Indication: Dry eye
     Dosage: ACCORDING TO THE PRESCRIPTION
     Route: 047
     Dates: start: 202012, end: 202102
  2. Systane  PF [Concomitant]
     Indication: Dry eye
     Dosage: 4X/DAY
     Route: 047
     Dates: start: 202012, end: 202102
  3. SYSTANE GELDROPS [Concomitant]
     Active Substance: POLYETHYLENE GLYCOL 400\PROPYLENE GLYCOL
     Indication: Dry eye
     Dosage: 4X/DAY
  4. GENTEAL NIGHT-TIME PM [Concomitant]
     Active Substance: MINERAL OIL\PETROLATUM
     Dosage: QPM
     Route: 047
     Dates: start: 202012

REACTIONS (8)
  - Tongue disorder [Not Recovered/Not Resolved]
  - Ageusia [Not Recovered/Not Resolved]
  - Back pain [Unknown]
  - Fatigue [Recovered/Resolved]
  - Anosmia [Not Recovered/Not Resolved]
  - Discomfort [Recovered/Resolved]
  - Headache [Recovered/Resolved]
  - Eye irritation [Recovered/Resolved]

NARRATIVE: CASE EVENT DATE: 20201201
